FAERS Safety Report 22035243 (Version 2)
Quarter: 2023Q1

REPORT INFORMATION
  Report Type: Spontaneous
  Country: GB (occurrence: GB)
  Receive Date: 20230224
  Receipt Date: 20230327
  Transmission Date: 20230417
  Serious: Yes (Disabling, Other)
  Sender: FDA-Public Use
  Company Number: None

PATIENT
  Sex: Female

DRUGS (3)
  1. BETAMETHASONE DIPROPIONATE [Suspect]
     Active Substance: BETAMETHASONE DIPROPIONATE
     Indication: Rash
     Dosage: TWICE A DAY FOR ONE WEEK/1 DOSAGE FORM
     Dates: start: 20190920, end: 20200605
  2. BETAMETHASONE VALERATE\FUSIDIC ACID [Suspect]
     Active Substance: BETAMETHASONE VALERATE\FUSIDIC ACID
     Indication: Rash
     Dosage: UNK
     Dates: start: 20171015, end: 20180804
  3. HYDROCORTISONE [Suspect]
     Active Substance: HYDROCORTISONE
     Indication: Rash
     Dosage: UNK

REACTIONS (17)
  - Rash erythematous [Recovering/Resolving]
  - Dry skin [Not Recovered/Not Resolved]
  - Skin fissures [Not Recovered/Not Resolved]
  - Skin weeping [Recovered/Resolved]
  - Lymphadenopathy [Not Recovered/Not Resolved]
  - Fatigue [Not Recovered/Not Resolved]
  - Insomnia [Recovering/Resolving]
  - Weight fluctuation [Recovering/Resolving]
  - Skin exfoliation [Not Recovered/Not Resolved]
  - Pruritus [Not Recovered/Not Resolved]
  - Incorrect product administration duration [Unknown]
  - Topical steroid withdrawal reaction [Unknown]
  - Erythema [Unknown]
  - Neuralgia [Unknown]
  - Skin haemorrhage [Unknown]
  - Asthenia [Unknown]
  - Steroid dependence [Unknown]

NARRATIVE: CASE EVENT DATE: 20200410
